FAERS Safety Report 13887102 (Version 1)
Quarter: 2017Q3

REPORT INFORMATION
  Report Type: Spontaneous
  Country: TH (occurrence: TH)
  Receive Date: 20170821
  Receipt Date: 20170821
  Transmission Date: 20171127
  Serious: Yes (Death)
  Sender: FDA-Public Use
  Company Number: TH-BAYER-2017-158646

PATIENT
  Age: 63 Year
  Sex: Male

DRUGS (1)
  1. ULTRAVIST [Suspect]
     Active Substance: IOPROMIDE
     Indication: COMPUTERISED TOMOGRAM ABDOMEN
     Dosage: 50 ML, ONCE

REACTIONS (5)
  - Dyspnoea [None]
  - Death [Fatal]
  - Discomfort [None]
  - Heart rate decreased [None]
  - Pruritus [None]

NARRATIVE: CASE EVENT DATE: 20170816
